FAERS Safety Report 4960538-5 (Version None)
Quarter: 2006Q1

REPORT INFORMATION
  Report Type: 
  Country: None (occurrence: None)
  Receive Date: 20060331
  Receipt Date: 20060331
  Transmission Date: 20060701
  Serious: Yes (Hospitalization)
  Sender: FDA-Public Use
  Company Number: None

PATIENT
  Age: 55 Year
  Sex: Female
  Weight: 85 kg

DRUGS (2)
  1. LISINOPRIL [Suspect]
     Indication: CARDIOVASCULAR EVENT PROPHYLAXIS
     Dosage: 20 MG  BID  PO
     Route: 048
     Dates: start: 19990101, end: 20060125
  2. LISINOPRIL [Suspect]
     Indication: CHEST DISCOMFORT
     Dosage: 20 MG  BID  PO
     Route: 048
     Dates: start: 19990101, end: 20060125

REACTIONS (9)
  - ACUTE CORONARY SYNDROME [None]
  - CHEST DISCOMFORT [None]
  - COUGH [None]
  - DRUG HYPERSENSITIVITY [None]
  - DYSPNOEA [None]
  - ELECTROCARDIOGRAM T WAVE INVERSION [None]
  - ERYTHEMA [None]
  - RASH GENERALISED [None]
  - WHEEZING [None]
